FAERS Safety Report 19796969 (Version 1)
Quarter: 2021Q3

REPORT INFORMATION
  Report Type: Spontaneous
  Country: US (occurrence: US)
  Receive Date: 20210905
  Receipt Date: 20210905
  Transmission Date: 20211014
  Serious: Yes (Life-Threatening, Disabling)
  Sender: FDA-Public Use
  Company Number: None

PATIENT
  Age: 73 Year
  Sex: Male
  Weight: 96.75 kg

DRUGS (3)
  1. ANTI SEIZURE [Concomitant]
  2. 81 MG ASPIRIN [Suspect]
     Active Substance: ASPIRIN
     Indication: PRODUCT USED FOR UNKNOWN INDICATION
     Dates: start: 20210711, end: 20210801
  3. HIGH BLOOD PRESSURE [Concomitant]

REACTIONS (4)
  - Aphasia [None]
  - Amnesia [None]
  - Cerebral haemorrhage [None]
  - Product prescribing issue [None]

NARRATIVE: CASE EVENT DATE: 20210803
